FAERS Safety Report 14210218 (Version 2)
Quarter: 2018Q1

REPORT INFORMATION
  Report Type: Spontaneous
  Country: US (occurrence: US)
  Receive Date: 20171121
  Receipt Date: 20180222
  Transmission Date: 20180508
  Serious: No
  Sender: FDA-Public Use
  Company Number: US-BAYER-2017-221692

PATIENT
  Age: 51 Year
  Sex: Female

DRUGS (2)
  1. BETASERON [Suspect]
     Active Substance: INTERFERON BETA-1B
     Indication: MULTIPLE SCLEROSIS
     Dosage: 0.25 MG, QOD
     Route: 058
  2. BETASERON [Suspect]
     Active Substance: INTERFERON BETA-1B
     Indication: MULTIPLE SCLEROSIS
     Dosage: 0.25 MG, QOD
     Route: 058
     Dates: start: 20120605

REACTIONS (10)
  - Gait inability [None]
  - Injection site pain [None]
  - Injection site vesicles [None]
  - Injection site pain [None]
  - Urinary tract infection [None]
  - Injection site reaction [None]
  - Pyrexia [None]
  - Scar [None]
  - Defaecation urgency [None]
  - Anal incontinence [None]

NARRATIVE: CASE EVENT DATE: 20180219
